FAERS Safety Report 6139011-7 (Version None)
Quarter: 2009Q1

REPORT INFORMATION
  Report Type: 
  Country: None (occurrence: None)
  Receive Date: 20090327
  Receipt Date: 20090320
  Transmission Date: 20090719
  Serious: Yes (Hospitalization)
  Sender: FDA-Public Use
  Company Number: 189171USA

PATIENT
  Age: 71 Year
  Sex: Male

DRUGS (5)
  1. BISOPROLOL FUMARATE [Suspect]
     Dosage: 1 DOSAGE FORMS (1 IN 1 D) ORAL
     Route: 048
  2. VASTAREL [Suspect]
     Dosage: 2 DOSAGE FORMS (2 IN 1 D) ORAL
     Route: 048
  3. PERINDOPRIL ERBUMINE [Suspect]
     Dosage: 1 DOSAGE FORMS (1 IN 1 D) ORAL
  4. FLUDEX [Suspect]
     Dosage: 5 MG (1 IN 1 D) ORAL
     Route: 048
  5. THERALENE [Suspect]
     Dosage: 15 DROPS/DAY ORAL
     Route: 048

REACTIONS (3)
  - DRUG INTERACTION [None]
  - FALL [None]
  - RHABDOMYOLYSIS [None]
